FAERS Safety Report 5214477-5 (Version None)
Quarter: 2007Q1

REPORT INFORMATION
  Report Type: 
  Country: None (occurrence: None)
  Receive Date: 20070116
  Receipt Date: 20070103
  Transmission Date: 20070707
  Serious: Yes (Other)
  Sender: FDA-Public Use
  Company Number: HQWYE141403MAR06

PATIENT
  Age: 55 Year
  Sex: Female

DRUGS (4)
  1. PRIMAXIN [Suspect]
     Indication: PNEUMONIA
     Dosage: 1 G 3X PER 1 DAY INTRAVENOUS
     Route: 042
     Dates: start: 20060224, end: 20060227
  2. ENALAPRIL MALEATE [Concomitant]
  3. NIMODIPINE (NIMODIPINE) [Concomitant]
  4. CLONIXIN LYSINATE (CLONIXIN LYSINATE) [Concomitant]

REACTIONS (2)
  - CEREBRAL HAEMORRHAGE [None]
  - GRAND MAL CONVULSION [None]
